FAERS Safety Report 12249112 (Version 2)
Quarter: 2016Q2

REPORT INFORMATION
  Report Type: Spontaneous
  Country: US (occurrence: US)
  Receive Date: 20160408
  Receipt Date: 20160413
  Transmission Date: 20160815
  Serious: Yes (Death)
  Sender: FDA-Public Use
  Company Number: US-SA-2016SA068934

PATIENT
  Sex: Male

DRUGS (3)
  1. AUBAGIO [Suspect]
     Active Substance: TERIFLUNOMIDE
     Route: 065
     Dates: start: 2014, end: 201512
  2. ASA [Concomitant]
     Active Substance: ASPIRIN
     Dates: start: 2016, end: 2016
  3. AUBAGIO [Suspect]
     Active Substance: TERIFLUNOMIDE
     Route: 065
     Dates: start: 2016, end: 2016

REACTIONS (6)
  - Acute respiratory distress syndrome [Fatal]
  - Multiple sclerosis relapse [Unknown]
  - Disseminated cryptococcosis [Fatal]
  - Lung disorder [Unknown]
  - Haemoptysis [Unknown]
  - Meningitis cryptococcal [Fatal]

NARRATIVE: CASE EVENT DATE: 2016
